FAERS Safety Report 7617311-9 (Version None)
Quarter: 2011Q3

REPORT INFORMATION
  Report Type: 
  Country: None (occurrence: None)
  Receive Date: 20110718
  Receipt Date: 20110706
  Transmission Date: 20111222
  Serious: Yes (Death, Other)
  Sender: FDA-Public Use
  Company Number: JP-SANOFI-AVENTIS-2011SA045241

PATIENT
  Age: 10 Year
  Sex: Female
  Weight: 40 kg

DRUGS (24)
  1. FLUDARABINE PHOSPHATE [Suspect]
     Indication: EPSTEIN-BARR VIRUS INFECTION
     Route: 048
     Dates: start: 20100604, end: 20100609
  2. FLUDARABINE PHOSPHATE [Suspect]
     Route: 048
     Dates: start: 20100716, end: 20100719
  3. CYTARABINE [Concomitant]
     Dates: start: 20100526, end: 20100608
  4. CEFPIROME SULFATE [Concomitant]
     Dates: start: 20100607, end: 20100614
  5. MEROPENEM [Concomitant]
     Dates: start: 20100614, end: 20100616
  6. MINOCYCLINE HCL [Concomitant]
     Dates: start: 20100614, end: 20100616
  7. TEICOPLANIN [Concomitant]
     Dates: start: 20100620, end: 20100715
  8. CYCLOPHOSPHAMIDE [Concomitant]
     Dates: start: 20100716, end: 20100716
  9. ANTI-THYMOCYTE GLOBULIN NOS [Suspect]
     Indication: BONE MARROW CONDITIONING REGIMEN
     Route: 041
     Dates: start: 20100604, end: 20100605
  10. MESNA [Concomitant]
     Dates: start: 20100716, end: 20100716
  11. GANCICLOVIR [Concomitant]
     Dates: start: 20100603, end: 20100610
  12. FAMOTIDINE [Concomitant]
     Dates: start: 20100604, end: 20100605
  13. METHOTREXATE [Concomitant]
     Dates: start: 20100612, end: 20100617
  14. MEROPENEM [Concomitant]
     Dates: start: 20100713, end: 20100802
  15. GRANISETRON HYDROCHLORIDE [Concomitant]
  16. ETOPOSIDE [Concomitant]
     Dates: start: 20100526, end: 20100719
  17. MELPHALAN HYDROCHLORIDE [Concomitant]
     Dates: start: 20100607, end: 20100608
  18. METHYLPREDNISOLONE SODIUM SUCCINATE [Concomitant]
     Dates: start: 20100604, end: 20100605
  19. ACYCLOVIR [Concomitant]
     Dates: start: 20100612, end: 20100920
  20. TACROLIMUS [Concomitant]
     Dates: start: 20100610, end: 20100617
  21. FOSFLUCONAZOLE [Concomitant]
     Dates: start: 20100607, end: 20100713
  22. VANCOMYCIN HYCHLORIDE [Concomitant]
     Dates: start: 20100616, end: 20100618
  23. CYCLOSPORINE [Concomitant]
     Dates: start: 20100622, end: 20100920
  24. MICAFUNGIN SODIUM [Concomitant]
     Dates: start: 20100713, end: 20100801

REACTIONS (3)
  - PNEUMONIA CYTOMEGALOVIRAL [None]
  - ENGRAFT FAILURE [None]
  - NEUTROPENIA [None]
